FAERS Safety Report 12217490 (Version 1)
Quarter: 2016Q1

REPORT INFORMATION
  Report Type: Spontaneous
  Country: US (occurrence: US)
  Receive Date: 20160329
  Receipt Date: 20160329
  Transmission Date: 20160526
  Serious: No
  Sender: FDA-Public Use
  Company Number: US-BRISTOL-MYERS SQUIBB COMPANY-BMS-2016-023132

PATIENT
  Sex: Female

DRUGS (5)
  1. SPRYCEL [Suspect]
     Active Substance: DASATINIB
     Indication: MYELOID LEUKAEMIA
     Dosage: 100 MG, QD
     Route: 048
     Dates: start: 20150326
  2. SPRYCEL [Suspect]
     Active Substance: DASATINIB
     Dosage: 80 MG, QD
     Route: 048
     Dates: start: 20150501
  3. SPRYCEL [Suspect]
     Active Substance: DASATINIB
     Dosage: 50 MG, QD
     Route: 048
     Dates: start: 20150619
  4. SPRYCEL [Suspect]
     Active Substance: DASATINIB
     Dosage: 20 MG, QOD
     Route: 048
     Dates: start: 20151222
  5. SPRYCEL [Suspect]
     Active Substance: DASATINIB
     Dosage: 20 MG, QD
     Route: 048
     Dates: start: 20150903

REACTIONS (1)
  - Ulcer [Unknown]
